FAERS Safety Report 13472465 (Version 1)
Quarter: 2017Q2

REPORT INFORMATION
  Report Type: Spontaneous
  Country: US (occurrence: US)
  Receive Date: 20170422
  Receipt Date: 20170422
  Transmission Date: 20170830
  Serious: Yes (Other)
  Sender: FDA-Public Use
  Company Number: None

PATIENT
  Age: 85 Year
  Sex: Female

DRUGS (1)
  1. LEUKERAN [Suspect]
     Active Substance: CHLORAMBUCIL
     Indication: NEOPLASM MALIGNANT
     Route: 048
     Dates: start: 20170420, end: 20170422

REACTIONS (2)
  - Sleep disorder [None]
  - Hallucination [None]

NARRATIVE: CASE EVENT DATE: 20170420
